FAERS Safety Report 23730692 (Version 2)
Quarter: 2024Q2

REPORT INFORMATION
  Report Type: Spontaneous
  Country: CA (occurrence: CA)
  Receive Date: 20240411
  Receipt Date: 20240523
  Transmission Date: 20240716
  Serious: Yes (Other)
  Sender: FDA-Public Use
  Company Number: CA-CELLTRION INC.-2022CA012371

PATIENT

DRUGS (17)
  1. INFLECTRA [Suspect]
     Active Substance: INFLIXIMAB-DYYB
     Indication: Crohn^s disease
     Dosage: 500 MG, AT WEEK 0, 2 AND 6 WEEKS THEN EVERY 8 WEEKS
     Route: 042
     Dates: start: 20220316, end: 20220316
  2. INFLECTRA [Suspect]
     Active Substance: INFLIXIMAB-DYYB
     Dosage: 500 MG, AT WEEK 0, 2 AND 6 WEEKS THEN EVERY 8 WEEKS
     Route: 042
     Dates: start: 20220504
  3. INFLECTRA [Suspect]
     Active Substance: INFLIXIMAB-DYYB
     Dosage: 500 MG, AT WEEK 0, 2 AND 6 WEEKS THEN EVERY 8 WEEKS
     Route: 042
     Dates: start: 20220714
  4. INFLECTRA [Suspect]
     Active Substance: INFLIXIMAB-DYYB
     Dosage: 500 MG, AT WEEK 0, 2 AND 6 WEEKS THEN EVERY 8 WEEKS
     Route: 042
     Dates: start: 20220909
  5. INFLECTRA [Suspect]
     Active Substance: INFLIXIMAB-DYYB
     Dosage: 500 MG, AT WEEK 0, 2 AND 6 WEEKS THEN EVERY 8 WEEKS
     Route: 042
     Dates: start: 20221103
  6. INFLECTRA [Suspect]
     Active Substance: INFLIXIMAB-DYYB
     Dosage: 10 MG/KG, ONCE BOOSTER
     Route: 042
     Dates: start: 20221215, end: 20221215
  7. INFLECTRA [Suspect]
     Active Substance: INFLIXIMAB-DYYB
     Dosage: 5 MG/KG (600MG), EVERY 6 WEEKS
     Route: 042
     Dates: start: 20230126
  8. INFLECTRA [Suspect]
     Active Substance: INFLIXIMAB-DYYB
     Dosage: 5 MG/KG, EVERY 6 WEEKS
     Route: 042
     Dates: start: 20230309
  9. INFLECTRA [Suspect]
     Active Substance: INFLIXIMAB-DYYB
     Dosage: 600 MG, Q EVERY 6 WEEKS
     Route: 042
     Dates: start: 20230420
  10. INFLECTRA [Suspect]
     Active Substance: INFLIXIMAB-DYYB
     Dosage: 600 MG, 7 WEEKS AFTER LAST INFUSION (PATIENT^S PRESCRIBED INFUSIONS ARE EVERY 6 WEEKS)
     Route: 042
     Dates: start: 20230613
  11. INFLECTRA [Suspect]
     Active Substance: INFLIXIMAB-DYYB
     Dosage: 5 MG/KG, EVERY 6 WEEKS
     Route: 042
     Dates: start: 20231129
  12. INFLECTRA [Suspect]
     Active Substance: INFLIXIMAB-DYYB
     Dosage: 5 MG/KG(600MG), EVERY 6 WEEKS
     Route: 042
     Dates: start: 20240109
  13. INFLECTRA [Suspect]
     Active Substance: INFLIXIMAB-DYYB
     Dosage: 5 MG/KG(600MG), EVERY 6 WEEKS
     Route: 042
     Dates: start: 20240220
  14. INFLECTRA [Suspect]
     Active Substance: INFLIXIMAB-DYYB
     Dosage: 5 MG/KG, EVERY 6 WEEKS (600 MG)
     Route: 042
     Dates: start: 20240402
  15. INFLECTRA [Suspect]
     Active Substance: INFLIXIMAB-DYYB
     Dosage: 5 MG/KG, EVERY 6 WEEKS (600 MG AFTER 6 WEEKS)
     Route: 042
     Dates: start: 20240514
  16. PANTOPRAZOLE SODIUM [Concomitant]
     Active Substance: PANTOPRAZOLE SODIUM
     Dosage: 40 MG
  17. PREDNISONE [Concomitant]
     Active Substance: PREDNISONE
     Dosage: UNK

REACTIONS (12)
  - Uveitis [Recovered/Resolved]
  - Drug ineffective [Unknown]
  - Drug level decreased [Unknown]
  - Blood pressure increased [Unknown]
  - Heart rate decreased [Unknown]
  - Arthralgia [Recovered/Resolved]
  - C-reactive protein increased [Not Recovered/Not Resolved]
  - Malaise [Not Recovered/Not Resolved]
  - Condition aggravated [Recovering/Resolving]
  - Off label use [Unknown]
  - Inappropriate schedule of product administration [Unknown]
  - Arthralgia [Recovered/Resolved]

NARRATIVE: CASE EVENT DATE: 20220101
